FAERS Safety Report 4622951-5 (Version None)
Quarter: 2005Q1

REPORT INFORMATION
  Report Type: 
  Country: None (occurrence: None)
  Receive Date: 20050329
  Receipt Date: 20050317
  Transmission Date: 20050727
  Serious: Yes (Hospitalization)
  Sender: FDA-Public Use
  Company Number: TCI2004A04447

PATIENT
  Age: 66 Year
  Sex: Male

DRUGS (10)
  1. ACTOS [Suspect]
     Indication: DIABETES MELLITUS NON-INSULIN-DEPENDENT
     Dosage: 15 MG (15 MG, 1 D), PER ORAL
     Route: 048
     Dates: start: 20030926, end: 20031103
  2. BASEN (VOGLIBOSE) [Suspect]
     Indication: DIABETES MELLITUS NON-INSULIN-DEPENDENT
     Dosage: 0.6 MG (0.6 MG, 1 D), PER ORAL
     Route: 048
     Dates: start: 20030926, end: 20031115
  3. BUFFERIN [Concomitant]
  4. PANALDINE (TICLOPIDINE HYDROCHLORIDE) [Concomitant]
  5. FAMOTIDINE [Concomitant]
  6. NORVASC [Concomitant]
  7. SINEMET [Concomitant]
  8. METHYCOBAL (MECOBALAMIN) [Concomitant]
  9. CABERGOLINE [Concomitant]
  10. SELEGILINE HYDROCHLORIDE [Concomitant]

REACTIONS (12)
  - ALANINE AMINOTRANSFERASE INCREASED [None]
  - ANGINA PECTORIS [None]
  - ASPARTATE AMINOTRANSFERASE INCREASED [None]
  - BLOOD LACTATE DEHYDROGENASE INCREASED [None]
  - CARDIAC DISORDER [None]
  - DIZZINESS [None]
  - ELECTROCARDIOGRAM ST SEGMENT ELEVATION [None]
  - GAMMA-GLUTAMYLTRANSFERASE INCREASED [None]
  - MYOCARDIAL INFARCTION [None]
  - NAUSEA [None]
  - TROPONIN I INCREASED [None]
  - UNEVALUABLE EVENT [None]
